FAERS Safety Report 6635697-9 (Version None)
Quarter: 2010Q1

REPORT INFORMATION
  Report Type: 
  Country: None (occurrence: None)
  Receive Date: 20100312
  Receipt Date: 20100312
  Transmission Date: 20100710
  Serious: Yes (Hospitalization)
  Sender: FDA-Public Use
  Company Number: None

PATIENT
  Sex: Male

DRUGS (4)
  1. ZIPRASIDONE HCL [Suspect]
     Indication: SCHIZOPHRENIA
     Dosage: 80MG DAILY PO
     Route: 048
     Dates: start: 20100217, end: 20100223
  2. ZIPRASIDONE HCL [Suspect]
     Indication: SCHIZOPHRENIA
     Dosage: 80MG BID PO
     Route: 048
     Dates: start: 20100224, end: 20100302
  3. COGENTIN [Concomitant]
  4. PROLIXIN [Concomitant]

REACTIONS (6)
  - ABNORMAL BEHAVIOUR [None]
  - AGGRESSION [None]
  - DRUG DOSE OMISSION [None]
  - INSOMNIA [None]
  - SALIVARY HYPERSECRETION [None]
  - SOMNOLENCE [None]
